FAERS Safety Report 6111091-4 (Version None)
Quarter: 2009Q1

REPORT INFORMATION
  Report Type: 
  Country: None (occurrence: None)
  Receive Date: 20090309
  Receipt Date: 20090309
  Transmission Date: 20090719
  Serious: No
  Sender: FDA-Public Use
  Company Number: None

PATIENT
  Age: 25 Year
  Sex: Female
  Weight: 58.9676 kg

DRUGS (1)
  1. ZICAM NASAL SWABS [Suspect]
     Indication: NASOPHARYNGITIS
     Dosage: ONE SWIP IN EACH NOSTRIL 3 TIMES
     Dates: start: 20090227, end: 20090302

REACTIONS (2)
  - DYSGEUSIA [None]
  - HYPOSMIA [None]
